FAERS Safety Report 24849506 (Version 1)
Quarter: 2025Q1

REPORT INFORMATION
  Report Type: Spontaneous
  Country: US (occurrence: None)
  Receive Date: 20250116
  Receipt Date: 20250116
  Transmission Date: 20250409
  Serious: Yes (Hospitalization)
  Sender: FDA-CTU
  Company Number: None

PATIENT
  Sex: Male

DRUGS (11)
  1. CAPECITABINE [Suspect]
     Active Substance: CAPECITABINE
     Indication: Colon cancer
     Route: 048
     Dates: start: 20250114
  2. OXALIPLATIN [Suspect]
     Active Substance: OXALIPLATIN
  3. BACLOFEN [Concomitant]
     Active Substance: BACLOFEN
  4. DULOXETINE [Concomitant]
     Active Substance: DULOXETINE
  5. GEMTESA [Concomitant]
     Active Substance: VIBEGRON
  6. IBUPROFEN [Concomitant]
     Active Substance: IBUPROFEN
  7. LIDO/PRILOCN CRE 2.5-2.5% [Concomitant]
  8. LYRICA [Concomitant]
     Active Substance: PREGABALIN
  9. MEGAREDA ADVA CAP TL BODY [Concomitant]
  10. METHENAM HIP TAB [Concomitant]
  11. MORPHINE SULFATE [Concomitant]
     Active Substance: MORPHINE SULFATE

REACTIONS (2)
  - Confusional state [None]
  - Platelet count abnormal [None]
